FAERS Safety Report 5650197-0 (Version None)
Quarter: 2008Q1

REPORT INFORMATION
  Report Type: 
  Country: None (occurrence: None)
  Receive Date: 20080227
  Receipt Date: 20080214
  Transmission Date: 20080703
  Serious: Yes (Other)
  Sender: FDA-Public Use
  Company Number: THYM-1000605

PATIENT
  Age: 38 Year
  Sex: Female

DRUGS (4)
  1. THYMOGLOBULIN [Suspect]
     Indication: TRANSPLANT
     Dosage: 1.25 MG/KG,QD,INTRAVENOUS
     Route: 042
     Dates: start: 20051127, end: 20051206
  2. TACROLIMUS [Suspect]
     Indication: TRANSPLANT
     Dates: start: 20051101, end: 20060101
  3. MYCOPHENOLATE MOFETIL [Suspect]
     Indication: TRANSPLANT
     Dosage: 2 G,QD
     Dates: start: 20051101
  4. PREDNISONE [Suspect]
     Indication: TRANSPLANT
     Dosage: 250 MG,QD,  10 MG
     Dates: start: 20051127, end: 20051127

REACTIONS (3)
  - HERPES SIMPLEX [None]
  - RENAL IMPAIRMENT [None]
  - SKIN GRAFT REJECTION [None]
